FAERS Safety Report 10932155 (Version 1)
Quarter: 2015Q1

REPORT INFORMATION
  Report Type: Spontaneous
  Country: US (occurrence: None)
  Receive Date: 20150212
  Receipt Date: 20150212
  Transmission Date: 20150721
  Serious: Yes (Hospitalization)
  Sender: FDA-Public Use
  Company Number: TPA2011A03593

PATIENT
  Age: 93 Year
  Sex: Female

DRUGS (6)
  1. ULORIC [Suspect]
     Active Substance: FEBUXOSTAT
     Indication: GOUT
     Dosage: 1 IN 1 D
     Route: 048
     Dates: start: 20110328, end: 20110403
  2. PREDNISONE. [Concomitant]
     Active Substance: PREDNISONE
  3. NYSTATIN. [Concomitant]
     Active Substance: NYSTATIN
  4. NEXIUM [Concomitant]
     Active Substance: ESOMEPRAZOLE MAGNESIUM
  5. WARFARIN [Concomitant]
     Active Substance: WARFARIN
  6. METOPROLOL [Concomitant]
     Active Substance: METOPROLOL

REACTIONS (2)
  - Pancreatitis [None]
  - Accidental overdose [None]

NARRATIVE: CASE EVENT DATE: 20110401
